FAERS Safety Report 5656649-1 (Version None)
Quarter: 2008Q1

REPORT INFORMATION
  Report Type: 
  Country: None (occurrence: None)
  Receive Date: 20080306
  Receipt Date: 20080306
  Transmission Date: 20080703
  Serious: Yes (Hospitalization)
  Sender: FDA-Public Use
  Company Number: None

PATIENT
  Age: 5 Year
  Sex: Male
  Weight: 18.5975 kg

DRUGS (1)
  1. MOTRIN [Suspect]
     Indication: PYREXIA
     Dosage: 1 TEA SPOON EVERY 8 HOURS PO
     Route: 048

REACTIONS (2)
  - ARTHRALGIA [None]
  - OEDEMA MOUTH [None]
